FAERS Safety Report 8679501 (Version 2)
Quarter: 2013Q1

REPORT INFORMATION
  Report Type: Spontaneous
  Country: US (occurrence: None)
  Receive Date: 20120706
  Receipt Date: 20130219
  Transmission Date: 20140127
  Serious: Yes (Hospitalization)
  Sender: FDA-Public Use
  Company Number: DSU-2012-05215

PATIENT
  Age: 62 Year
  Sex: Female

DRUGS (6)
  1. OLMESARTAN MEDOXOMIL [Suspect]
     Dosage: , PER ORAL
     Route: 048
  2. ALENDRONATE (ALENDRONATE SODIUM) [Concomitant]
  3. CALCIUM-VIT D (COLECALCIFEROL, CALCIUM) [Concomitant]
  4. MULTIVITAMIN (ERGOCALCIFEROL, ASCORBIC ACID, PYRIDOXINE HYDROCHLORIDE, THIAMINE HYDROCHLORIDE, RETINOL, RIBOFLAVIN, NICOTINAMIDE, CALCIUM PANTOTHENATE) [Concomitant]
  5. OMEGA 3 FISH OIL (FISH OIL) [Concomitant]
  6. VITAMIN C [Concomitant]

REACTIONS (7)
  - WEIGHT DECREASED [None]
  - GASTRITIS [None]
  - Flatulence [None]
  - Nausea [None]
  - Vomiting [None]
  - Diarrhoea [None]
  - Dehydration [None]
